FAERS Safety Report 4844584-8 (Version None)
Quarter: 2005Q4

REPORT INFORMATION
  Report Type: 
  Country: None (occurrence: None)
  Receive Date: 20051125
  Receipt Date: 20051114
  Transmission Date: 20060501
  Serious: Yes (Other)
  Sender: FDA-Public Use
  Company Number: 2005156418

PATIENT
  Age: 80 Year
  Sex: Female
  Weight: 74.8435 kg

DRUGS (10)
  1. XALATAN [Suspect]
     Indication: GLAUCOMA
     Dosage: 4 DROPS IN LEFT EYE (1 DROP, QID), OPHTHALMIC
     Route: 047
  2. NEURONTIN [Suspect]
     Indication: NEUROPATHY
     Dosage: 300 MG (300 MG, DAILY)
     Dates: start: 20020101
  3. ZOLOFT [Suspect]
     Indication: DEPRESSION
     Dosage: 125 MG (DAILY),
  4. DETROL LA [Suspect]
     Indication: INCONTINENCE
     Dosage: 4 MG (4 MG, DAILY),
     Dates: start: 20040101
  5. DOXAZOSIN (DOXAZOSIN) [Concomitant]
  6. GLUCOTROL [Concomitant]
  7. SYNTHROID [Concomitant]
  8. ALPRAZOLAM [Concomitant]
  9. TRICOR [Concomitant]
  10. ASPIRIN [Concomitant]

REACTIONS (6)
  - ARTHRALGIA [None]
  - CONDITION AGGRAVATED [None]
  - EYE OPERATION [None]
  - FALL [None]
  - MUSCULOSKELETAL STIFFNESS [None]
  - URINARY INCONTINENCE [None]
